FAERS Safety Report 6529076-2 (Version None)
Quarter: 2009Q4

REPORT INFORMATION
  Report Type: 
  Country: None (occurrence: None)
  Receive Date: 20091222
  Receipt Date: 20091121
  Transmission Date: 20100525
  Serious: Yes (Life-Threatening, Hospitalization, Other)
  Sender: FDA-Public Use
  Company Number: AE-2009-308

PATIENT
  Age: 39 Year
  Sex: Male

DRUGS (10)
  1. METFORMIN HYDROCHLORIDE [Suspect]
     Indication: TYPE 2 DIABETES MELLITUS
     Dosage: 500MG, TID, ORAL
     Route: 048
     Dates: start: 20090217
  2. SIMVASTATIN [Suspect]
     Indication: BLOOD CHOLESTEROL INCREASED
     Dosage: ORAL
     Route: 048
     Dates: start: 20090217
  3. CLOMIPRAMINE HCL [Suspect]
     Indication: DEPRESSION
     Dosage: ORAL
     Route: 048
     Dates: start: 20091217
  4. CLOZARIL [Suspect]
     Indication: SCHIZOPHRENIA
     Dosage: 600MG, QD, ORAL; 600MG, QD, ORAL
     Route: 048
     Dates: start: 20031202
  5. CLOZARIL [Suspect]
     Indication: SCHIZOPHRENIA
     Dosage: 600MG, QD, ORAL; 600MG, QD, ORAL
     Route: 048
     Dates: start: 20090217
  6. HYOSCINE [Suspect]
     Dates: start: 20090217
  7. LISINOPRIL [Suspect]
     Indication: HYPERTENSION
     Dosage: 5MG, QD, ORAL
     Route: 048
     Dates: start: 20090217
  8. OMEPRAZOLE [Suspect]
     Dates: start: 20090217
  9. SENNA [Suspect]
     Indication: CONSTIPATION
     Dosage: ORAL
     Route: 048
  10. THIAMINE HYDROCHLORIDE [Suspect]
     Dosage: 100MG, TID, ORAL
     Route: 048

REACTIONS (6)
  - AGITATION [None]
  - COMA SCALE ABNORMAL [None]
  - MECHANICAL VENTILATION [None]
  - MULTIPLE DRUG OVERDOSE [None]
  - NEUTROPHIL COUNT INCREASED [None]
  - WHITE BLOOD CELL COUNT INCREASED [None]
